FAERS Safety Report 4978681-3 (Version None)
Quarter: 2006Q2

REPORT INFORMATION
  Report Type: 
  Country: None (occurrence: None)
  Receive Date: 20060420
  Receipt Date: 20050609
  Transmission Date: 20061013
  Serious: Yes (Hospitalization, Other)
  Sender: FDA-Public Use
  Company Number: US-MERCK-0506USA01866

PATIENT
  Age: 68 Year
  Sex: Male
  Weight: 130 kg

DRUGS (8)
  1. VIOXX [Suspect]
     Indication: ARTHRITIS
     Route: 048
     Dates: start: 20020101, end: 20030101
  2. VIOXX [Suspect]
     Route: 048
  3. ISOSORBIDE [Concomitant]
     Indication: HYPERTENSION
     Route: 065
  4. ZESTRIL [Concomitant]
     Indication: HYPERTENSION
     Route: 065
  5. PROCARDIA [Concomitant]
     Indication: HYPERTENSION
     Route: 065
  6. INSULIN, BIPHASIC ISOPHANE [INJECTION] [Concomitant]
     Indication: DIABETES MELLITUS
     Route: 065
     Dates: start: 19840101
  7. INSULIN, BIPHASIC ISOPHANE [INJECTION] [Concomitant]
     Route: 065
     Dates: start: 19840101
  8. NITROGLYCERIN [Concomitant]
     Route: 065

REACTIONS (31)
  - ANEURYSM [None]
  - ARTHROPATHY [None]
  - BLISTER [None]
  - CARDIAC DISORDER [None]
  - CARDIAC FAILURE CONGESTIVE [None]
  - CARDIOMEGALY [None]
  - CEREBRAL THROMBOSIS [None]
  - CHOLELITHIASIS [None]
  - CHRONIC OBSTRUCTIVE PULMONARY DISEASE [None]
  - CONSTIPATION [None]
  - CORONARY ARTERY DISEASE [None]
  - CORONARY ARTERY OCCLUSION [None]
  - DIABETIC FOOT INFECTION [None]
  - DILATATION ATRIAL [None]
  - DRUG DOSE OMISSION [None]
  - ELECTROCARDIOGRAM ST-T CHANGE [None]
  - ERECTILE DYSFUNCTION [None]
  - HEADACHE [None]
  - HYPERLIPIDAEMIA [None]
  - HYPERTENSION [None]
  - HYPERTENSIVE CRISIS [None]
  - HYPERTENSIVE HEART DISEASE [None]
  - INSOMNIA [None]
  - OVERDOSE [None]
  - PAIN IN EXTREMITY [None]
  - PRODUCTIVE COUGH [None]
  - RENAL CYST [None]
  - RENAL FAILURE CHRONIC [None]
  - TACHYCARDIA [None]
  - THROMBOSIS [None]
  - VENTRICULAR HYPERTROPHY [None]
